FAERS Safety Report 6420001-1 (Version None)
Quarter: 2009Q4

REPORT INFORMATION
  Report Type: 
  Country: None (occurrence: None)
  Receive Date: 20091029
  Receipt Date: 20090227
  Transmission Date: 20100525
  Serious: Yes (Hospitalization, Disabling)
  Sender: FDA-Public Use
  Company Number: DK-BAYER-200936817GPV

PATIENT
  Age: 47 Year
  Sex: Male

DRUGS (9)
  1. GADOLINIUM BASED CONTRAST MEDIA [Suspect]
     Indication: SCAN WITH CONTRAST
     Route: 042
     Dates: start: 20030807, end: 20030807
  2. GADOLINIUM BASED CONTRAST MEDIA [Suspect]
     Route: 042
     Dates: start: 20020121, end: 20020121
  3. OMNISCAN [Suspect]
     Route: 042
     Dates: start: 20020430, end: 20020430
  4. SELO-ZOK [Concomitant]
     Route: 048
  5. COZAAR [Concomitant]
     Route: 048
  6. DIURAL [FUROSEMIDE] [Concomitant]
  7. CALCIUM CARBONATE [Concomitant]
  8. MAGNYL DAK/ ACETYLSALICYLIC ACID [Concomitant]
  9. MIXTARD HUMAN INSULIN [Concomitant]

REACTIONS (10)
  - FLUID RETENTION [None]
  - GAIT DISTURBANCE [None]
  - HEPATIC FUNCTION ABNORMAL [None]
  - HEPATITIS TOXIC [None]
  - HYPOAESTHESIA [None]
  - MUSCULAR WEAKNESS [None]
  - NEPHROGENIC SYSTEMIC FIBROSIS [None]
  - OEDEMA PERIPHERAL [None]
  - PRURITUS [None]
  - WOUND [None]
